FAERS Safety Report 24157562 (Version 2)
Quarter: 2024Q3

REPORT INFORMATION
  Report Type: Report from Study
  Country: ES (occurrence: ES)
  Receive Date: 20240731
  Receipt Date: 20240821
  Transmission Date: 20241017
  Serious: No
  Sender: TEVA
  Company Number: ES-TEVA-VS-3225007

PATIENT
  Age: 54 Year
  Sex: Female

DRUGS (1)
  1. TERIPARATIDE [Suspect]
     Active Substance: TERIPARATIDE
     Indication: Osteoporosis
     Dosage: DOSE: 20 MCG/80 MCL
     Route: 065
     Dates: start: 20240721, end: 20240722

REACTIONS (6)
  - Abdominal pain [Recovered/Resolved]
  - Nausea [Recovered/Resolved]
  - Dizziness [Recovered/Resolved]
  - Back pain [Recovered/Resolved]
  - Headache [Recovered/Resolved]
  - Puncture site erythema [Recovered/Resolved]

NARRATIVE: CASE EVENT DATE: 20240721
